FAERS Safety Report 7094409-8 (Version None)
Quarter: 2010Q4

REPORT INFORMATION
  Report Type: 
  Country: None (occurrence: None)
  Receive Date: 20101110
  Receipt Date: 20101105
  Transmission Date: 20110411
  Serious: Yes (Death)
  Sender: FDA-Public Use
  Company Number: BR-PFIZER INC-2010128196

PATIENT
  Age: 79 Year
  Sex: Male
  Weight: 79.6 kg

DRUGS (4)
  1. PREDNISONE [Suspect]
     Indication: PROSTATE CANCER
     Dosage: 5 MG, TWICE DAILY
     Route: 048
     Dates: start: 20100420
  2. BLINDED *NO SUBJECT DRUG [Suspect]
     Indication: PROSTATE CANCER
     Dosage: 37.5 MG, DAILY
     Route: 048
     Dates: start: 20100420, end: 20100830
  3. PLACEBO [Suspect]
     Indication: PROSTATE CANCER
     Dosage: 37.5 MG, DAILY
     Route: 048
     Dates: start: 20100420, end: 20100830
  4. SUNITINIB MALATE [Suspect]
     Indication: PROSTATE CANCER
     Dosage: 37.5 MG, DAILY
     Route: 048
     Dates: start: 20100420, end: 20100830

REACTIONS (4)
  - CYANOSIS [None]
  - DEHYDRATION [None]
  - GENERAL PHYSICAL HEALTH DETERIORATION [None]
  - POOR PERIPHERAL CIRCULATION [None]
